FAERS Safety Report 8621228 (Version 2)
Quarter: 2012Q4

REPORT INFORMATION
  Report Type: 
  Country: US (occurrence: US)
  Receive Date: 20120619
  Receipt Date: 20120924
  Transmission Date: 20130627
  Serious: No
  Sender: FDA-Public Use
  Company Number: US-PFIZER INC-2012142355

PATIENT
  Age: 49 Year
  Sex: Female

DRUGS (6)
  1. ACCUPRIL [Suspect]
     Dosage: UNK
  2. QUINAPRIL HCL [Suspect]
     Indication: HYPERTENSION
     Dosage: 20 mg, daily
     Route: 048
     Dates: start: 2012, end: 2012
  3. QUINAPRIL HYDROCHLORIDE [Suspect]
     Indication: HYPERTENSION
     Dosage: 20 mg, daily
     Route: 048
     Dates: start: 2012, end: 2012
  4. LEVOTHYROXINE [Concomitant]
     Indication: HYPERTHYROIDISM
     Dosage: UNK
  5. HUMALOG [Concomitant]
     Indication: DIABETES MELLITUS
     Dosage: UNK
  6. ATORVASTATIN [Concomitant]
     Indication: BLOOD CHOLESTEROL
     Dosage: UNK

REACTIONS (3)
  - Sinusitis [Unknown]
  - Cough [Unknown]
  - Nasal congestion [Unknown]
